FAERS Safety Report 17770249 (Version 1)
Quarter: 2020Q2

REPORT INFORMATION
  Report Type: Spontaneous
  Country: CH (occurrence: CH)
  Receive Date: 20200512
  Receipt Date: 20200512
  Transmission Date: 20200714
  Serious: Yes (Death)
  Sender: FDA-Public Use
  Company Number: CH-CELGENEUS-CHE-20200502037

PATIENT
  Sex: Female

DRUGS (2)
  1. GEMCITABINE. [Concomitant]
     Active Substance: GEMCITABINE
     Indication: PANCREATIC CARCINOMA METASTATIC
     Dosage: DOSE NOT PROVIDED
     Route: 065
  2. ABRAXANE [Suspect]
     Active Substance: PACLITAXEL
     Indication: PANCREATIC CARCINOMA METASTATIC
     Dosage: 32.1429 MILLIGRAM
     Route: 041
     Dates: start: 20160201

REACTIONS (1)
  - Death [Fatal]
